FAERS Safety Report 10174224 (Version 1)
Quarter: 2014Q2

REPORT INFORMATION
  Report Type: Spontaneous
  Country: US (occurrence: None)
  Receive Date: 20140514
  Receipt Date: 20140514
  Transmission Date: 20141212
  Serious: Yes (Hospitalization)
  Sender: FDA-Public Use
  Company Number: None

PATIENT
  Age: 52 Year
  Sex: Female
  Weight: 93.9 kg

DRUGS (1)
  1. EXJADE [Suspect]
     Indication: PORPHYRIN METABOLISM DISORDER
     Route: 048
     Dates: start: 20131220, end: 20130213

REACTIONS (2)
  - Renal failure [None]
  - Adverse drug reaction [None]
